FAERS Safety Report 10710218 (Version 2)
Quarter: 2015Q1

REPORT INFORMATION
  Report Type: Spontaneous
  Country: US (occurrence: US)
  Receive Date: 20150114
  Receipt Date: 20150217
  Transmission Date: 20150721
  Serious: Yes (Other)
  Sender: FDA-Public Use
  Company Number: US-SA-2015SA003464

PATIENT
  Age: 62 Year
  Sex: Female

DRUGS (3)
  1. SOLOSTAR [Suspect]
     Active Substance: DEVICE
     Indication: TYPE 2 DIABETES MELLITUS
     Dates: start: 2009
  2. HUMALOG [Concomitant]
     Active Substance: INSULIN LISPRO
  3. LANTUS SOLOSTAR [Suspect]
     Active Substance: INSULIN GLARGINE
     Indication: TYPE 2 DIABETES MELLITUS
     Dosage: DOSE:16 UNIT(S)
     Route: 065
     Dates: start: 2009

REACTIONS (6)
  - Paralysis [Unknown]
  - Seizure [Unknown]
  - Cataract [Unknown]
  - Agitation [Unknown]
  - Cerebrovascular accident [Unknown]
  - Asthma [Unknown]
